FAERS Safety Report 6648015-7 (Version None)
Quarter: 2010Q1

REPORT INFORMATION
  Report Type: 
  Country: None (occurrence: None)
  Receive Date: 20100324
  Receipt Date: 20100318
  Transmission Date: 20100710
  Serious: Yes (Hospitalization, Disabling, Other)
  Sender: FDA-Public Use
  Company Number: US-ELI_LILLY_AND_COMPANY-US201003005513

PATIENT
  Sex: Female

DRUGS (2)
  1. HUMALOG [Suspect]
     Dosage: 5 U, 3/D
     Dates: start: 20081101
  2. LANTUS [Concomitant]

REACTIONS (3)
  - FALL [None]
  - KNEE OPERATION [None]
  - LIMB OPERATION [None]
